FAERS Safety Report 8790662 (Version 4)
Quarter: 2013Q1

REPORT INFORMATION
  Report Type: Spontaneous
  Country: US (occurrence: None)
  Receive Date: 20120904
  Receipt Date: 20121130
  Transmission Date: 20140127
  Serious: Yes (Other)
  Sender: FDA-Public Use
  Company Number: 2012033193

PATIENT
  Sex: Male
  Weight: 69.4 kg

DRUGS (7)
  1. HIZENTRA [Suspect]
     Indication: HYPOGAMMAGLOBULINAEMIA
     Dosage: (??-MAR-2012), (FROM MAR-2012 UNTIL JUL-2012)
     Route: 058
     Dates: start: 20120730, end: 201203
  2. HIZENTRA [Suspect]
     Indication: IMMUNODEFICIENCY COMMON VARIABLE
     Dosage: (??-MAR-2012), (FROM MAR-2012 UNTIL JUL-2012)
     Route: 058
     Dates: start: 20120730, end: 201203
  3. ADVAIR (SERETIDE /01420901/) () [Concomitant]
  4. BACTRIM (BACTRIM /00086101/) [Concomitant]
  5. ALBUTEROL (SALBUTAMOL) [Concomitant]
  6. ZYRTEC (CETIRIZINE HYDROCHLORIDE) [Concomitant]
  7. NEXIUM (ESOMEPRAZOLE MAGNESIUM) [Concomitant]

REACTIONS (8)
  - Infusion site ulcer [None]
  - Infusion site necrosis [None]
  - Eschar [None]
  - Infusion site erythema [None]
  - Infusion site reaction [None]
  - Infusion site induration [None]
  - Product contamination [None]
  - Product quality issue [None]
